FAERS Safety Report 5762971-0 (Version None)
Quarter: 2008Q2

REPORT INFORMATION
  Report Type: 
  Country: None (occurrence: None)
  Receive Date: 20080609
  Receipt Date: 20080528
  Transmission Date: 20081010
  Serious: Yes (Hospitalization)
  Sender: FDA-Public Use
  Company Number: FR-PFIZER INC-2006025359

PATIENT
  Sex: Male
  Weight: 78 kg

DRUGS (13)
  1. SU-011,248 [Suspect]
     Indication: RENAL CANCER
     Route: 048
     Dates: start: 20051107, end: 20051204
  2. CLAMOXYL [Concomitant]
     Indication: PROPHYLAXIS
     Route: 048
     Dates: start: 20050607, end: 20050612
  3. CETORNAN [Concomitant]
     Indication: ANOREXIA
     Route: 048
     Dates: start: 20050803, end: 20050816
  4. MOPRAL [Concomitant]
     Indication: ABDOMINAL PAIN
     Route: 048
  5. CACIT [Concomitant]
     Indication: PROPHYLAXIS
     Route: 048
     Dates: start: 20050803, end: 20050816
  6. STILNOX [Concomitant]
     Indication: PROPHYLAXIS
     Route: 048
  7. PREDNISONE [Concomitant]
     Indication: PROPHYLAXIS
     Route: 048
     Dates: start: 20050803, end: 20050816
  8. XANAX [Concomitant]
     Indication: PROPHYLAXIS
     Route: 048
  9. TARDYFERON [Concomitant]
     Indication: PROPHYLAXIS
     Route: 048
     Dates: start: 20050803, end: 20050816
  10. VITABACT [Concomitant]
     Indication: CONJUNCTIVITIS
     Route: 061
     Dates: start: 20051025, end: 20051106
  11. TRIFLUCAN [Concomitant]
     Indication: FUNGAL INFECTION
     Route: 048
     Dates: start: 20051025, end: 20051206
  12. MITOSYL [Concomitant]
     Indication: FUNGAL INFECTION
     Route: 061
     Dates: start: 20051025, end: 20051107
  13. VASELINE [Concomitant]
     Indication: DRY SKIN
     Route: 061
     Dates: start: 20051107, end: 20051204

REACTIONS (1)
  - FUNGAL INFECTION [None]
